FAERS Safety Report 20461851 (Version 1)
Quarter: 2022Q1

REPORT INFORMATION
  Report Type: Spontaneous
  Country: US (occurrence: None)
  Receive Date: 20220211
  Receipt Date: 20220211
  Transmission Date: 20220423
  Serious: Yes (Life-Threatening)
  Sender: FDA-Public Use
  Company Number: None

PATIENT
  Age: 34 Year
  Sex: Female

DRUGS (3)
  1. THIAMINE [Suspect]
     Active Substance: THIAMINE
     Indication: Hyperemesis gravidarum
     Dosage: FREQUENCY : ONCE;?
     Route: 042
     Dates: start: 20220210, end: 20220210
  2. VITAMINS [Suspect]
     Active Substance: VITAMINS
     Indication: Hyperemesis gravidarum
     Dosage: FREQUENCY : ONCE;?
     Route: 042
     Dates: start: 20220210, end: 20220210
  3. SOLUTION [Concomitant]
     Active Substance: MINOXIDIL

REACTIONS (9)
  - Dyspnoea [None]
  - Dizziness [None]
  - Presyncope [None]
  - Nausea [None]
  - Erythema [None]
  - Infusion related reaction [None]
  - Maternal exposure during pregnancy [None]
  - Foetal exposure during pregnancy [None]
  - Therapy cessation [None]

NARRATIVE: CASE EVENT DATE: 20220210
